FAERS Safety Report 14991473 (Version 1)
Quarter: 2018Q2

REPORT INFORMATION
  Report Type: Spontaneous
  Country: US (occurrence: US)
  Receive Date: 20180608
  Receipt Date: 20180608
  Transmission Date: 20180711
  Serious: No
  Sender: FDA-Public Use
  Company Number: US-GLAXOSMITHKLINE-US2018GSK099224

PATIENT
  Age: 16 Year
  Sex: Male

DRUGS (5)
  1. ARNUITY ELLIPTA [Suspect]
     Active Substance: FLUTICASONE FUROATE
     Indication: ASTHMA
     Dosage: 200 UG, BID
     Route: 055
     Dates: start: 20180516
  2. MONTELUKAST [Concomitant]
     Active Substance: MONTELUKAST SODIUM
     Dosage: 10 MG, QD
  3. PREDNISONE. [Concomitant]
     Active Substance: PREDNISONE
     Dosage: 60 MG, QD
     Route: 048
  4. ALBUTEROL. [Concomitant]
     Active Substance: ALBUTEROL
     Dosage: 2 PUFF(S), Q4HRS
  5. LEVOCETIRIZINE [Concomitant]
     Active Substance: LEVOCETIRIZINE
     Dosage: 5 MG, QD
     Route: 048

REACTIONS (1)
  - Prescribed overdose [Unknown]

NARRATIVE: CASE EVENT DATE: 20180516
